FAERS Safety Report 7777655-7 (Version None)
Quarter: 2011Q3

REPORT INFORMATION
  Report Type: 
  Country: None (occurrence: None)
  Receive Date: 20110926
  Receipt Date: 20110916
  Transmission Date: 20111222
  Serious: Yes (Other)
  Sender: FDA-Public Use
  Company Number: US-US-EMD SERONO, INC.-7066716

PATIENT
  Sex: Female

DRUGS (4)
  1. IBUPROFEN [Concomitant]
     Indication: PAIN
  2. DILAUDID [Concomitant]
  3. REBIF [Suspect]
     Indication: MULTIPLE SCLEROSIS
     Route: 058
     Dates: start: 20101217
  4. TYLENOL-500 [Concomitant]

REACTIONS (6)
  - OVARIAN CYST [None]
  - INJECTION SITE HAEMATOMA [None]
  - INJECTION SITE PAIN [None]
  - MULTIPLE SCLEROSIS RELAPSE [None]
  - INJECTION SITE ERYTHEMA [None]
  - ENDOMETRIOSIS [None]
